FAERS Safety Report 24293682 (Version 1)
Quarter: 2024Q3

REPORT INFORMATION
  Report Type: Spontaneous
  Country: US (occurrence: None)
  Receive Date: 20240906
  Receipt Date: 20240906
  Transmission Date: 20241017
  Serious: No
  Sender: DOMPE FARMACEUTICI
  Company Number: US-FARMAPROD-202402-0538

PATIENT
  Age: 71 Year
  Sex: Female

DRUGS (16)
  1. OXERVATE [Suspect]
     Active Substance: CENEGERMIN-BKBJ
     Indication: Neurotrophic keratopathy
     Route: 047
     Dates: start: 20240205, end: 20240403
  2. OXERVATE [Suspect]
     Active Substance: CENEGERMIN-BKBJ
  3. VITAMIN C [Concomitant]
     Active Substance: ASCORBIC ACID
  4. FISH OIL [Concomitant]
     Active Substance: FISH OIL
     Dosage: 100-160 MG
  5. CALCIUM [Concomitant]
     Active Substance: CALCIUM
     Dosage: 500(1250)
  6. DIETARY SUPPLEMENT [Concomitant]
     Active Substance: DIETARY SUPPLEMENT
  7. MAGNESIUM BIOTIN [Concomitant]
  8. ZINC [Concomitant]
     Active Substance: ZINC
  9. BRIMONIDINE TARTRATE [Concomitant]
     Active Substance: BRIMONIDINE TARTRATE
  10. VITAMIN D3 [Concomitant]
     Active Substance: CHOLECALCIFEROL
  11. TIMOLOL MALEATE [Concomitant]
     Active Substance: TIMOLOL MALEATE
  12. OMEGA-3 ACIDS [Concomitant]
     Active Substance: OMEGA-3 FATTY ACIDS
  13. MAGNESIUM [Concomitant]
     Active Substance: MAGNESIUM
  14. BIOTIN [Concomitant]
     Active Substance: BIOTIN
  15. DAILY MULTIPLE VITAMIN [Concomitant]
  16. CYCLOSPORINE [Concomitant]
     Active Substance: CYCLOSPORINE
     Dosage: 0.1-0.25 %, BOTH EYES

REACTIONS (7)
  - Eye pain [Unknown]
  - Ocular discomfort [Recovered/Resolved]
  - Eye swelling [Unknown]
  - Ocular hyperaemia [Unknown]
  - Therapy partial responder [Unknown]
  - Eye irritation [Unknown]
  - Eye irritation [Unknown]

NARRATIVE: CASE EVENT DATE: 20240215
